FAERS Safety Report 11272038 (Version 1)
Quarter: 2015Q3

REPORT INFORMATION
  Report Type: Spontaneous
  Country: FR (occurrence: None)
  Receive Date: 20150713
  Receipt Date: 20150713
  Transmission Date: 20151125
  Serious: Yes (Hospitalization)
  Sender: FDA-Public Use
  Company Number: FR-2015-0219

PATIENT
  Age: 9 Week
  Sex: Male
  Weight: 5.8 kg

DRUGS (1)
  1. HEMANGIOL (PROPRANOLOL HYDROCHLORIDE) ORAL SOLUTION [Suspect]
     Active Substance: PROPRANOLOL HYDROCHLORIDE
     Indication: INFANTILE HAEMANGIOMA
     Dosage: 1.5 MG/KG/DAY IN 3 INTAKES DAILY ORAL
     Route: 048
     Dates: start: 20141029, end: 20141029

REACTIONS (5)
  - Cyanosis [None]
  - Dyspnoea [None]
  - Malaise [None]
  - Bronchiolitis [None]
  - Bronchospasm [None]

NARRATIVE: CASE EVENT DATE: 20141201
